FAERS Safety Report 19487606 (Version 1)
Quarter: 2021Q3

REPORT INFORMATION
  Report Type: Spontaneous
  Country: GR (occurrence: GR)
  Receive Date: 20210702
  Receipt Date: 20210702
  Transmission Date: 20211014
  Serious: Yes (Other)
  Sender: FDA-Public Use
  Company Number: GR-AMGEN-GRCSP2021098363

PATIENT
  Age: 25 Year
  Sex: Male
  Weight: 37.5 kg

DRUGS (11)
  1. SEROPRAM [ESCITALOPRAM OXALATE] [Concomitant]
     Dosage: 20 MILLIGRAM
  2. ADALIMUMAB [Suspect]
     Active Substance: ADALIMUMAB
     Indication: COLITIS ULCERATIVE
     Dosage: UNK
     Route: 065
  3. PARIET [Concomitant]
     Active Substance: RABEPRAZOLE SODIUM
     Dosage: 20 MILLIGRAM
  4. IDEOS [Concomitant]
     Active Substance: CALCIUM CARBONATE\CHOLECALCIFEROL
     Dosage: 1000MG/800IU
  5. MESALAZINE [Concomitant]
     Active Substance: MESALAMINE
     Dosage: UNK
  6. INFLIXIMAB [Concomitant]
     Active Substance: INFLIXIMAB
     Dosage: UNK
  7. XANAX [Concomitant]
     Active Substance: ALPRAZOLAM
     Dosage: 0.5 MILLIGRAM
  8. FILICINE [Concomitant]
     Active Substance: FOLIC ACID
     Dosage: 5 MILLIGRAM
  9. METHYLPREDNISOLONE. [Concomitant]
     Active Substance: METHYLPREDNISOLONE
     Dosage: UNK
  10. MEDROL [Concomitant]
     Active Substance: METHYLPREDNISOLONE
     Dosage: 8 MILLIGRAM
  11. LECALCIF [Concomitant]
     Active Substance: CHOLECALCIFEROL
     Dosage: 25.000IU, QWK

REACTIONS (6)
  - Colitis ulcerative [Recovered/Resolved]
  - Hypoalbuminaemia [Recovering/Resolving]
  - Inflammatory marker increased [Recovering/Resolving]
  - Drug ineffective [Unknown]
  - Iron deficiency anaemia [Recovering/Resolving]
  - Depression [Recovering/Resolving]
